FAERS Safety Report 10473250 (Version 1)
Quarter: 2014Q3

REPORT INFORMATION
  Report Type: Spontaneous
  Country: DE (occurrence: DE)
  Receive Date: 20140924
  Receipt Date: 20140924
  Transmission Date: 20150326
  Serious: Yes (Other)
  Sender: FDA-Public Use
  Company Number: DE-DRREDDYS-GER/GER/14/0043165

PATIENT
  Age: 22 Year
  Sex: Female
  Weight: 79 kg

DRUGS (2)
  1. LAMOTRIGINE. [Suspect]
     Active Substance: LAMOTRIGINE
     Indication: EPILEPSY
     Route: 048
     Dates: start: 20120921, end: 20130605
  2. RIVOTRIL [Concomitant]
     Active Substance: CLONAZEPAM
     Indication: EPILEPSY
     Dosage: 2 MG ON DEMAND
     Route: 048

REACTIONS (3)
  - Exposure during pregnancy [Unknown]
  - Convulsion [Unknown]
  - Caesarean section [Unknown]
